FAERS Safety Report 9161388 (Version 1)
Quarter: 2012Q4

REPORT INFORMATION
  Report Type: 
  Country: US (occurrence: US)
  Receive Date: 20121227
  Receipt Date: 20121227
  Transmission Date: 20130627
  Serious: Yes (Other)
  Sender: FDA-Public Use
  Company Number: US-RB-048100-12

PATIENT
  Age: 19 Year
  Sex: Male

DRUGS (1)
  1. SUBOXONE FILM [Suspect]
     Indication: DRUG DEPENDENCE
     Dosage: Suboxone film; 8-16 mg/daily
     Route: 060
     Dates: start: 20121210

REACTIONS (8)
  - Convulsion [Recovered/Resolved]
  - Anger [Not Recovered/Not Resolved]
  - Depression [Not Recovered/Not Resolved]
  - Insomnia [Not Recovered/Not Resolved]
  - Restlessness [Not Recovered/Not Resolved]
  - Mood altered [Not Recovered/Not Resolved]
  - Pyrexia [Not Recovered/Not Resolved]
  - Substance abuse [Not Recovered/Not Resolved]
